FAERS Safety Report 10675351 (Version 1)
Quarter: 2014Q4

REPORT INFORMATION
  Report Type: Spontaneous
  Country: DE (occurrence: DE)
  Receive Date: 20141224
  Receipt Date: 20141224
  Transmission Date: 20150529
  Serious: Yes (Death, Hospitalization)
  Sender: FDA-Public Use
  Company Number: DE-ASTRAZENECA-2014SE98419

PATIENT
  Age: 85 Year
  Sex: Female
  Weight: 85 kg

DRUGS (2)
  1. QUETIAPIN [Suspect]
     Active Substance: QUETIAPINE
     Route: 048
  2. HALOPERIDOL. [Interacting]
     Active Substance: HALOPERIDOL
     Dosage: THREE TO FOUR TABLETS A DAY
     Route: 065

REACTIONS (2)
  - Drug interaction [Unknown]
  - Coma [Fatal]
